FAERS Safety Report 8784249 (Version 2)
Quarter: 2012Q4

REPORT INFORMATION
  Report Type: 
  Country: JP (occurrence: JP)
  Receive Date: 20120914
  Receipt Date: 20120918
  Transmission Date: 20130627
  Serious: Yes (Other)
  Sender: FDA-Public Use
  Company Number: JP-TEVA-358892USA

PATIENT
  Age: 79 Year
  Sex: Female

DRUGS (1)
  1. TREANDA [Suspect]
     Indication: MANTLE CELL LYMPHOMA
     Dosage: 60 mg/m2, Unknown/D
     Dates: start: 20110201

REACTIONS (1)
  - Hepatitis B [Recovered/Resolved]
